FAERS Safety Report 8550911-0 (Version None)
Quarter: 2012Q3

REPORT INFORMATION
  Report Type: 
  Country: None (occurrence: None)
  Receive Date: 20120730
  Receipt Date: 20120723
  Transmission Date: 20120928
  Serious: Yes (Other)
  Sender: FDA-Public Use
  Company Number: US-BAYER-2012-074631

PATIENT
  Age: 81 Year
  Sex: Female
  Weight: 76 kg

DRUGS (3)
  1. ANTIHYPERTENSIVES [Concomitant]
  2. ONE-A-DAY [VIT C,B12,D2,B3,B6,RETINOL,B2,B1 MONONITR] [Concomitant]
  3. ALEVE (CAPLET) [Suspect]
     Dosage: 2 TABLETS
     Route: 048
     Dates: start: 20120723, end: 20120723

REACTIONS (8)
  - SYNCOPE [None]
  - DIZZINESS [None]
  - PARAESTHESIA [None]
  - PRURITUS [None]
  - THIRST [None]
  - HEART RATE INCREASED [None]
  - THROAT TIGHTNESS [None]
  - HYPERSENSITIVITY [None]
